FAERS Safety Report 4540502-0 (Version None)
Quarter: 2004Q4

REPORT INFORMATION
  Report Type: 
  Country: None (occurrence: None)
  Receive Date: 20041228
  Receipt Date: 20041228
  Transmission Date: 20050328
  Serious: Yes (Hospitalization)
  Sender: FDA-Public Use
  Company Number: None

PATIENT
  Age: 62 Year
  Sex: Female
  Weight: 92.2 kg

DRUGS (10)
  1. FLUOROURACIL [Suspect]
     Indication: MALIGNANT ANORECTAL NEOPLASM
     Dates: start: 20040920
  2. FLUOROURACIL [Suspect]
     Indication: MALIGNANT ANORECTAL NEOPLASM
     Dates: start: 20041018
  3. FLUOROURACIL [Suspect]
     Indication: MALIGNANT ANORECTAL NEOPLASM
     Dates: start: 20041115
  4. FLUOROURACIL [Suspect]
     Indication: MALIGNANT ANORECTAL NEOPLASM
     Dates: start: 20041213
  5. CISPLATIN [Suspect]
     Indication: MALIGNANT ANORECTAL NEOPLASM
     Dates: start: 20040920
  6. CISPLATIN [Suspect]
     Indication: MALIGNANT ANORECTAL NEOPLASM
     Dates: start: 20041018
  7. CISPLATIN [Suspect]
     Indication: MALIGNANT ANORECTAL NEOPLASM
     Dates: start: 20041115
  8. CISPLATIN [Suspect]
     Indication: MALIGNANT ANORECTAL NEOPLASM
     Dates: start: 20041213
  9. CT [Suspect]
     Dates: start: 20041115
  10. CT [Suspect]
     Dates: start: 20041213

REACTIONS (2)
  - DIZZINESS [None]
  - GASTROENTERITIS RADIATION [None]
